FAERS Safety Report 7675131-3 (Version None)
Quarter: 2011Q3

REPORT INFORMATION
  Report Type: 
  Country: None (occurrence: None)
  Receive Date: 20110810
  Receipt Date: 20110804
  Transmission Date: 20111222
  Serious: Yes (Other)
  Sender: FDA-Public Use
  Company Number: US-MERCK-1107USA02793

PATIENT
  Age: 74 Year
  Sex: Female

DRUGS (3)
  1. JANUMET [Suspect]
     Indication: DIABETES MELLITUS
     Route: 048
     Dates: start: 20110101, end: 20110701
  2. SYNTHROID [Concomitant]
     Route: 065
  3. MIRAPEX [Concomitant]
     Route: 065

REACTIONS (2)
  - URINARY TRACT INFECTION [None]
  - RENAL FAILURE ACUTE [None]
